FAERS Safety Report 9198903 (Version 1)
Quarter: 2013Q1

REPORT INFORMATION
  Report Type: Spontaneous
  Country: US (occurrence: US)
  Receive Date: 20130329
  Receipt Date: 20130329
  Transmission Date: 20140127
  Serious: Yes (Hospitalization)
  Sender: FDA-Public Use
  Company Number: US-009507513-1303USA013006

PATIENT
  Sex: Female

DRUGS (1)
  1. COZAAR [Suspect]
     Indication: HYPERTENSION
     Dosage: 100 MG, ONCE A DAY IN MORNING
     Route: 048
     Dates: start: 199909

REACTIONS (3)
  - Hysterectomy [Not Recovered/Not Resolved]
  - Oophorectomy [Not Recovered/Not Resolved]
  - Renin increased [Not Recovered/Not Resolved]
